FAERS Safety Report 13550123 (Version 1)
Quarter: 2017Q2

REPORT INFORMATION
  Report Type: Spontaneous
  Country: FR (occurrence: FR)
  Receive Date: 20170516
  Receipt Date: 20170516
  Transmission Date: 20170830
  Serious: Yes (Death, Other)
  Sender: FDA-Public Use
  Company Number: FR-NORTHSTAR HEALTHCARE HOLDINGS-FR-2017NSR000149

PATIENT
  Age: 46 Year
  Sex: Male

DRUGS (3)
  1. SERTRALINE [Suspect]
     Active Substance: SERTRALINE HYDROCHLORIDE
     Indication: SUICIDE ATTEMPT
     Dosage: UNK
     Route: 048
  2. BACLOFEN. [Suspect]
     Active Substance: BACLOFEN
     Indication: SUICIDE ATTEMPT
     Dosage: UNK
     Route: 048
  3. IRBESARTAN. [Suspect]
     Active Substance: IRBESARTAN
     Indication: SUICIDE ATTEMPT
     Dosage: UNK
     Route: 048

REACTIONS (5)
  - Toxicity to various agents [Fatal]
  - Asphyxia [Fatal]
  - Poisoning deliberate [Not Recovered/Not Resolved]
  - Completed suicide [Fatal]
  - Intentional overdose [Not Recovered/Not Resolved]
